FAERS Safety Report 7790462-4 (Version None)
Quarter: 2011Q3

REPORT INFORMATION
  Report Type: 
  Country: None (occurrence: None)
  Receive Date: 20110930
  Receipt Date: 20110915
  Transmission Date: 20111222
  Serious: Yes (Death, Life-Threatening, Hospitalization, Other)
  Sender: FDA-Public Use
  Company Number: NO-ARROW GEN-2011-14916

PATIENT
  Sex: Male
  Weight: 88 kg

DRUGS (6)
  1. TRABECTEDIN [Interacting]
     Indication: LIPOSARCOMA
     Dosage: 3.15 MG, UNK
     Route: 042
     Dates: start: 20110801, end: 20110802
  2. SIMVASTATIN [Suspect]
     Indication: PRODUCT USED FOR UNKNOWN INDICATION
     Dosage: UNK
     Route: 065
  3. ASPIRIN [Concomitant]
     Indication: CARDIOVASCULAR DISORDER
     Dosage: 75 MG, UNKNOWN
     Route: 048
     Dates: start: 20090201
  4. METOPROLOL [Concomitant]
     Indication: CARDIOVASCULAR DISORDER
     Dosage: 100 MG, UNKNOWN
     Route: 048
     Dates: start: 20090201
  5. RAMIPRIL [Concomitant]
     Indication: CARDIOVASCULAR DISORDER
     Dosage: 5 MG, UNKNOWN
     Route: 048
     Dates: start: 20090201
  6. ZOCOR [Concomitant]
     Indication: CARDIOVASCULAR DISORDER
     Dosage: 60 MG, UNKNOWN
     Route: 048
     Dates: start: 20090201

REACTIONS (9)
  - DEATH [None]
  - ASCITES [None]
  - PLEURAL EFFUSION [None]
  - RENAL FAILURE [None]
  - LIVER FUNCTION TEST ABNORMAL [None]
  - PANCYTOPENIA [None]
  - RHABDOMYOLYSIS [None]
  - BONE MARROW FAILURE [None]
  - DRUG INTERACTION [None]
